FAERS Safety Report 5192965-8 (Version None)
Quarter: 2006Q4

REPORT INFORMATION
  Report Type: 
  Country: None (occurrence: None)
  Receive Date: 20061228
  Receipt Date: 20060324
  Transmission Date: 20070319
  Serious: No
  Sender: FDA-Public Use
  Company Number: US-GLAXOSMITHKLINE-A0598951A

PATIENT
  Sex: Female

DRUGS (2)
  1. FLONASE [Suspect]
     Dosage: 2SPR PER DAY
     Route: 045
     Dates: start: 20060101, end: 20060301
  2. EVISTA [Concomitant]

REACTIONS (1)
  - BONE DENSITOMETRY [None]
